FAERS Safety Report 15453339 (Version 3)
Quarter: 2018Q4

REPORT INFORMATION
  Report Type: Spontaneous
  Country: JP (occurrence: JP)
  Receive Date: 20181001
  Receipt Date: 20181029
  Transmission Date: 20190204
  Serious: Yes (Death, Other)
  Sender: FDA-Public Use
  Company Number: JP-ABBVIE-18P-087-2503072-00

PATIENT
  Age: 78 Year
  Sex: Male

DRUGS (1)
  1. ADALIMUMAB [Suspect]
     Active Substance: ADALIMUMAB
     Indication: BEHCET^S SYNDROME
     Route: 058

REACTIONS (4)
  - Peritonitis [Fatal]
  - Pyrexia [Unknown]
  - Intestinal ulcer perforation [Unknown]
  - Kaposi^s sarcoma [Unknown]
